FAERS Safety Report 7859062-1 (Version None)
Quarter: 2011Q4

REPORT INFORMATION
  Report Type: 
  Country: None (occurrence: None)
  Receive Date: 20111027
  Receipt Date: 20101102
  Transmission Date: 20120403
  Serious: No
  Sender: FDA-Public Use
  Company Number: US-PFIZER INC-US-WYE-H18527810

PATIENT
  Sex: Female
  Weight: 70 kg

DRUGS (4)
  1. LASIX [Concomitant]
  2. PREMARIN [Suspect]
     Indication: MENOPAUSE
     Dosage: 0.5 G, 1X/DAY
     Route: 067
     Dates: start: 20101029
  3. PREMARIN [Suspect]
     Indication: VULVOVAGINAL DRYNESS
  4. BISMUTH SUBSALICYLATE [Concomitant]

REACTIONS (1)
  - BREAST PAIN [None]
